FAERS Safety Report 21587067 (Version 2)
Quarter: 2022Q4

REPORT INFORMATION
  Report Type: Report from Study
  Country: US (occurrence: US)
  Receive Date: 20221114
  Receipt Date: 20221221
  Transmission Date: 20230112
  Serious: Yes (Other)
  Sender: FDA-Public Use
  Company Number: US-BEIGENE USA INC-BGN-2022-008381

PATIENT

DRUGS (4)
  1. BRUKINSA [Suspect]
     Active Substance: ZANUBRUTINIB
     Indication: Waldenstrom^s macroglobulinaemia
     Dosage: 160 MILLIGRAM, BID
     Route: 048
     Dates: start: 20220725
  2. BRUKINSA [Suspect]
     Active Substance: ZANUBRUTINIB
     Dosage: 160 MILLIGRAM, BID
     Route: 048
     Dates: start: 20220725
  3. BRUKINSA [Suspect]
     Active Substance: ZANUBRUTINIB
     Dosage: 160 MILLIGRAM, BID
     Route: 048
     Dates: start: 20220725
  4. BRUKINSA [Suspect]
     Active Substance: ZANUBRUTINIB
     Dosage: 160 MILLIGRAM, BID
     Route: 048
     Dates: start: 20220725

REACTIONS (12)
  - Basal cell carcinoma [Unknown]
  - Neuropathy peripheral [Unknown]
  - Fatigue [Recovering/Resolving]
  - Nausea [Unknown]
  - Defaecation disorder [Unknown]
  - Increased tendency to bruise [Unknown]
  - Night sweats [Recovered/Resolved]
  - Pruritus [Unknown]
  - Headache [Unknown]
  - Rash [Unknown]
  - Red blood cell count decreased [Unknown]
  - Product dose omission issue [Unknown]
